FAERS Safety Report 9982895 (Version 1)
Quarter: 2014Q1

REPORT INFORMATION
  Report Type: Report from Study
  Country: US (occurrence: US)
  Receive Date: 20140307
  Receipt Date: 20140307
  Transmission Date: 20141002
  Serious: No
  Sender: FDA-Public Use
  Company Number: US-ABBVIE-13P-163-1181034-00

PATIENT
  Age: 24 Year
  Sex: Female
  Weight: 49.94 kg

DRUGS (4)
  1. HUMIRA [Suspect]
     Indication: CROHN^S DISEASE
     Route: 058
     Dates: start: 2010, end: 2011
  2. HUMIRA [Suspect]
     Dates: start: 20131205
  3. LIALDA [Concomitant]
     Indication: CROHN^S DISEASE
  4. ALIGN [Concomitant]
     Indication: PROBIOTIC THERAPY

REACTIONS (4)
  - Painful respiration [Not Recovered/Not Resolved]
  - Pleurisy [Recovered/Resolved]
  - Chest pain [Recovered/Resolved]
  - Dyspnoea [Recovered/Resolved]
